FAERS Safety Report 6473802-8 (Version None)
Quarter: 2009Q4

REPORT INFORMATION
  Report Type: 
  Country: None (occurrence: None)
  Receive Date: 20091204
  Receipt Date: 20091130
  Transmission Date: 20100525
  Serious: No
  Sender: FDA-Public Use
  Company Number: US-BAYER-200941649NA

PATIENT
  Age: 74 Year
  Sex: Male

DRUGS (1)
  1. MAGNEVIST [Suspect]
     Indication: NUCLEAR MAGNETIC RESONANCE IMAGING BRAIN
     Dosage: TOTAL DAILY DOSE: 15 ML  UNIT DOSE: 15 ML
     Route: 042
     Dates: start: 20091127, end: 20091127

REACTIONS (7)
  - ERYTHEMA [None]
  - HYPOTENSION [None]
  - NAUSEA [None]
  - RASH [None]
  - SWELLING FACE [None]
  - URTICARIA [None]
  - VOMITING [None]
